FAERS Safety Report 16233240 (Version 2)
Quarter: 2019Q2

REPORT INFORMATION
  Report Type: Spontaneous
  Country: US (occurrence: US)
  Receive Date: 20190424
  Receipt Date: 20190604
  Transmission Date: 20190711
  Serious: No
  Sender: FDA-Public Use
  Company Number: US-PFIZER INC-2019169686

PATIENT
  Age: 67 Year
  Sex: Female
  Weight: 80.74 kg

DRUGS (3)
  1. LYRICA CR [Suspect]
     Active Substance: PREGABALIN
     Dosage: UNK
  2. METOPROLOL. [Concomitant]
     Active Substance: METOPROLOL
     Indication: HYPERTENSION
     Dosage: 25 MG, 2X/DAY
     Route: 048
  3. LYRICA CR [Suspect]
     Active Substance: PREGABALIN
     Indication: NEURALGIA
     Dosage: 165 MG, 1X/DAY (AT BEDTIME)
     Route: 048
     Dates: start: 201902

REACTIONS (4)
  - Withdrawal syndrome [Recovered/Resolved]
  - Dizziness [Unknown]
  - Nervousness [Unknown]
  - Tremor [Unknown]

NARRATIVE: CASE EVENT DATE: 201903
